FAERS Safety Report 7501478-7 (Version None)
Quarter: 2011Q2

REPORT INFORMATION
  Report Type: 
  Country: None (occurrence: None)
  Receive Date: 20110524
  Receipt Date: 20081027
  Transmission Date: 20111010
  Serious: Yes (Death, Other)
  Sender: FDA-Public Use
  Company Number: US-BAYER-200838308NA

PATIENT
  Age: 81 Year
  Sex: Male
  Weight: 78 kg

DRUGS (29)
  1. ZOCOR [Concomitant]
     Dosage: 20 MG, QD
     Route: 048
     Dates: start: 20030417
  2. LASIX [Concomitant]
     Dosage: 40 MG, QD
     Route: 042
     Dates: start: 20050210
  3. COREG [Concomitant]
     Dosage: 3.125 MG, BID
     Route: 048
     Dates: start: 20050211
  4. CEFUROXIME [Concomitant]
     Dosage: 1.5 GRAM
     Route: 042
     Dates: start: 20050215
  5. PLASMALYTE [GLUCOSE,POTASSIUM CHLORIDE] [Concomitant]
     Dosage: 1000 CC
     Route: 042
     Dates: start: 20050215
  6. GLIPIZIDE [Concomitant]
     Dosage: 2.5-5 MG DAILY
     Route: 048
     Dates: start: 19960326
  7. ZOSYN [Concomitant]
     Dosage: 3.375 MG EVERY 8 HOURS
     Route: 042
     Dates: start: 20050210
  8. TRASYLOL [Suspect]
     Indication: AORTIC VALVE REPLACEMENT
     Dosage: 200 ML, ONCE
     Route: 042
     Dates: start: 20050215
  9. PLAVIX [Concomitant]
     Dosage: 75 MG DAILY TO EVERY OTHER DAY
     Route: 048
     Dates: start: 20031007
  10. REGULAR INSULIN [Concomitant]
     Dosage: SLIDING SCALE BEFORE MEALS AND BEDTIME
     Route: 058
     Dates: start: 20050209
  11. BEXTRA [Concomitant]
     Dosage: 10-20 MG DAILY
     Route: 048
     Dates: start: 20040510
  12. NITROGLYCERIN [Suspect]
     Dosage: 50 MG/250 ML DRIP,START AT 3 MCG
     Route: 042
     Dates: start: 20050209
  13. ZITHROMAX [Concomitant]
     Dosage: 250-500 MG DAILY
     Route: 042
     Dates: start: 20050209
  14. METHYLPREDNISOLONE [Concomitant]
     Dosage: 40 MG
     Route: 042
     Dates: start: 20050212
  15. TRASYLOL [Suspect]
     Indication: MITRAL VALVE REPAIR
  16. PRINIVIL [Concomitant]
     Dosage: 5 MG, QD
     Route: 048
     Dates: start: 20001023
  17. DARVOCET [Concomitant]
     Dosage: 100/650 MG
     Route: 048
     Dates: start: 20040310
  18. CEFTRIAXONE [Concomitant]
     Dosage: 1 GM EVERY 24 HOURS
     Route: 042
     Dates: start: 20050209
  19. HEPARIN [Concomitant]
     Dosage: 5000 UNITS BOLUS, 1000-1100 UNITS/HOUR DRIP
     Route: 042
     Dates: start: 20050210
  20. TRASYLOL [Suspect]
     Indication: CORONARY ARTERY BYPASS
  21. VANCOMYCIN [Concomitant]
     Dosage: 1 GRAM
     Route: 042
     Dates: start: 20050215
  22. CALCIUM CHLORIDE [Concomitant]
     Dosage: 1 GRAM
     Route: 042
     Dates: start: 20050215
  23. DIGOXIN [Concomitant]
     Dosage: 0.25 MG DAILY
     Route: 042
     Dates: start: 20050209
  24. HYDROCHLOROTHIAZIDE [Concomitant]
     Dosage: 25 MG, QD
     Route: 048
     Dates: start: 19951122, end: 20050101
  25. ACETYLSALICYLIC ACID SRT [Concomitant]
     Dosage: 81-300 MG DAILY
     Route: 048
  26. LOVENOX [Concomitant]
     Dosage: 1 MG/KG TWICE DAILY
     Route: 058
     Dates: start: 20050209
  27. FENTANYL [Concomitant]
     Dosage: 25-35 MCG
     Route: 042
     Dates: start: 20050210
  28. AMIODARONE HCL [Concomitant]
     Dosage: 150 MG BOLUS,0.5-1 MG/MINUTE DRIP
     Route: 042
     Dates: start: 20050210
  29. NESIRITIDE [Concomitant]
     Dosage: 1.5 MG
     Route: 042
     Dates: start: 20050215

REACTIONS (12)
  - STRESS [None]
  - ANHEDONIA [None]
  - DEATH [None]
  - RENAL INJURY [None]
  - FEAR [None]
  - PAIN [None]
  - RENAL IMPAIRMENT [None]
  - ANXIETY [None]
  - UNEVALUABLE EVENT [None]
  - RENAL FAILURE [None]
  - EMOTIONAL DISTRESS [None]
  - INJURY [None]
